FAERS Safety Report 7272262-7 (Version None)
Quarter: 2011Q1

REPORT INFORMATION
  Report Type: 
  Country: None (occurrence: None)
  Receive Date: 20110203
  Receipt Date: 20110124
  Transmission Date: 20110831
  Serious: Yes (Hospitalization, Other)
  Sender: FDA-Public Use
  Company Number: PHHY2009CA15551

PATIENT
  Sex: Male

DRUGS (5)
  1. EXJADE [Suspect]
     Indication: SIDEROBLASTIC ANAEMIA
     Dosage: UNK
     Route: 048
     Dates: start: 20090613, end: 20100224
  2. FOSAMAX [Concomitant]
  3. TAZOCIN [Concomitant]
  4. TUMS [Concomitant]
  5. PREDNISONE [Concomitant]

REACTIONS (13)
  - HYPERHIDROSIS [None]
  - DIZZINESS [None]
  - BEDRIDDEN [None]
  - CHILLS [None]
  - GASTROOESOPHAGEAL REFLUX DISEASE [None]
  - PARALYSIS [None]
  - MALAISE [None]
  - ASTHENIA [None]
  - ABDOMINAL PAIN UPPER [None]
  - NAUSEA [None]
  - HEADACHE [None]
  - PYREXIA [None]
  - GASTROINTESTINAL TRACT IRRITATION [None]
